FAERS Safety Report 9471907 (Version 1)
Quarter: 2013Q3

REPORT INFORMATION
  Report Type: Spontaneous
  Country: US (occurrence: US)
  Receive Date: 20130823
  Receipt Date: 20130823
  Transmission Date: 20140515
  Serious: Yes (Other)
  Sender: FDA-Public Use
  Company Number: US-AMGEN-USASP2013058097

PATIENT
  Age: 80 Year
  Sex: Female

DRUGS (9)
  1. PROLIA [Suspect]
     Indication: PRODUCT USED FOR UNKNOWN INDICATION
     Dosage: UNK
     Route: 065
  2. PROTONIX [Concomitant]
     Dosage: 40 MG, BID
  3. SYMBICORT [Concomitant]
  4. ASPIRIN [Concomitant]
     Dosage: 325 MG, QD
  5. ENZALUTAMIDE [Concomitant]
     Dosage: UNK UNK, QD
  6. LEVOTHYROXINE                      /00068002/ [Concomitant]
     Dosage: 100 MUG, QD
  7. METOPROLOL                         /00376902/ [Concomitant]
     Dosage: 12.5 MG, BID
  8. TRIAMTERENE AND HYDROCHLOROTHIAZID [Concomitant]
     Dosage: 37.5/25, QD
  9. LIPITOR [Concomitant]
     Dosage: 10 MG, QD

REACTIONS (1)
  - Liver function test abnormal [Unknown]
